FAERS Safety Report 20710509 (Version 1)
Quarter: 2022Q2

REPORT INFORMATION
  Report Type: Spontaneous
  Country: JP (occurrence: JP)
  Receive Date: 20220414
  Receipt Date: 20220414
  Transmission Date: 20220720
  Serious: Yes (Other)
  Sender: FDA-Public Use
  Company Number: JP-NOVARTISPH-NVSC2022JP084866

PATIENT

DRUGS (10)
  1. DEXAMETHASONE [Interacting]
     Active Substance: DEXAMETHASONE
     Indication: B-cell lymphoma refractory
     Dosage: 20 MG/BODY ON DAYS 1-4
     Route: 065
  2. DEXAMETHASONE [Interacting]
     Active Substance: DEXAMETHASONE
     Indication: Chemotherapy
  3. APREPITANT [Interacting]
     Active Substance: APREPITANT
     Indication: B-cell lymphoma refractory
     Dosage: UNK
     Route: 065
  4. APREPITANT [Interacting]
     Active Substance: APREPITANT
     Indication: Antiemetic supportive care
  5. RITUXIMAB [Suspect]
     Active Substance: RITUXIMAB
     Indication: B-cell lymphoma refractory
     Dosage: 375 MG/M2 WAS ADDED BEFORE OR AFTER DHAP
     Route: 065
  6. RITUXIMAB [Suspect]
     Active Substance: RITUXIMAB
     Indication: Chemotherapy
  7. CISPLATIN [Suspect]
     Active Substance: CISPLATIN
     Indication: B-cell lymphoma refractory
     Dosage: 100 MG/M2 ON DAY 1
     Route: 065
  8. CISPLATIN [Suspect]
     Active Substance: CISPLATIN
     Indication: Chemotherapy
  9. CYTARABINE [Suspect]
     Active Substance: CYTARABINE
     Indication: B-cell lymphoma refractory
     Dosage: 2 G/M2 ON DAY 2
     Route: 065
  10. CYTARABINE [Suspect]
     Active Substance: CYTARABINE
     Indication: Chemotherapy

REACTIONS (3)
  - Neutropenia [Unknown]
  - Drug interaction [Unknown]
  - Product use in unapproved indication [Unknown]
